FAERS Safety Report 16474791 (Version 1)
Quarter: 2019Q2

REPORT INFORMATION
  Report Type: Report from Study
  Country: ZA (occurrence: ZA)
  Receive Date: 20190625
  Receipt Date: 20190625
  Transmission Date: 20190711
  Serious: Yes (Hospitalization)
  Sender: FDA-Public Use
  Company Number: ZA-GILEAD-2019-0414668

PATIENT
  Age: 25 Year
  Sex: Female

DRUGS (9)
  1. FOLIC ACID. [Concomitant]
     Active Substance: FOLIC ACID
  2. FLAGYL [Concomitant]
     Active Substance: METRONIDAZOLE\METRONIDAZOLE HYDROCHLORIDE
     Dosage: UNK
     Route: 048
     Dates: start: 20190602
  3. PETHIDINE [Concomitant]
     Active Substance: MEPERIDINE
     Indication: SEDATION
     Dosage: UNK
  4. FERROUS SULPHATE [FERROUS SULFATE] [Concomitant]
     Active Substance: FERROUS SULFATE
  5. AZITHROMYCIN ANHYDROUS. [Concomitant]
     Active Substance: AZITHROMYCIN ANHYDROUS
     Dosage: UNK
     Dates: start: 20190602
  6. AMOXIL [AMOXICILLIN] [Concomitant]
     Dosage: UNK
     Route: 048
     Dates: start: 20190602
  7. BETAMETHASONE. [Concomitant]
     Active Substance: BETAMETHASONE
     Dosage: UNK
     Dates: start: 20190602
  8. ADALAT [Concomitant]
     Active Substance: NIFEDIPINE
     Dosage: UNK
     Dates: start: 20190602
  9. EMTRICITABINE/TENOFOVIR DISOPROXIL FUMARATE [Suspect]
     Active Substance: EMTRICITABINE\TENOFOVIR DISOPROXIL FUMARATE
     Indication: PROPHYLAXIS AGAINST HIV INFECTION
     Dosage: 500 MG, QD
     Route: 065
     Dates: start: 20190219

REACTIONS (2)
  - Maternal exposure during pregnancy [Recovered/Resolved]
  - Premature delivery [Recovered/Resolved]

NARRATIVE: CASE EVENT DATE: 20190219
